FAERS Safety Report 8573239-1 (Version None)
Quarter: 2012Q3

REPORT INFORMATION
  Report Type: 
  Country: None (occurrence: None)
  Receive Date: 20120806
  Receipt Date: 20110726
  Transmission Date: 20120928
  Serious: Yes (Death, Hospitalization, Other)
  Sender: FDA-Public Use
  Company Number: DE-CELGENEUS-062-21880-12053540

PATIENT
  Age: 78 Year
  Sex: Male
  Weight: 61 kg

DRUGS (8)
  1. DEXAMETHASONE [Concomitant]
     Dosage: 20 MILLIGRAM
     Route: 048
     Dates: start: 20091127, end: 20110512
  2. LOW MOLECULAR HEPARIN [Concomitant]
     Indication: ANTICOAGULANT THERAPY
     Route: 065
  3. REVLIMID [Suspect]
     Dosage: 10 MILLIGRAM
     Route: 048
     Dates: start: 20091127, end: 20110512
  4. DEXAMETHASONE [Concomitant]
     Indication: MULTIPLE MYELOMA
     Dosage: 20 MILLIGRAM
     Route: 048
     Dates: start: 20091029
  5. ASPIRIN [Concomitant]
     Indication: ANTICOAGULANT THERAPY
     Route: 065
  6. REVLIMID [Suspect]
     Indication: MULTIPLE MYELOMA
     Dosage: 10 MILLIGRAM
     Route: 048
     Dates: start: 20091029
  7. MARCUMAR [Concomitant]
     Indication: ANTICOAGULANT THERAPY
     Route: 065
  8. PAMIDRONATE DISODIUM [Concomitant]
     Dosage: .2 MILLIGRAM
     Route: 065
     Dates: start: 20090216, end: 20110510

REACTIONS (10)
  - CHRONIC MYELOID LEUKAEMIA [None]
  - SUBDURAL HAEMATOMA [None]
  - INFECTION [None]
  - ARRHYTHMIA [None]
  - HERPES ZOSTER [None]
  - ANAEMIA [None]
  - ISCHAEMIC CEREBRAL INFARCTION [None]
  - PNEUMONIA [None]
  - DIARRHOEA [None]
  - MULTIPLE MYELOMA [None]
